FAERS Safety Report 8818435 (Version 3)
Quarter: 2013Q1

REPORT INFORMATION
  Report Type: Spontaneous
  Country: US (occurrence: US)
  Receive Date: 20121001
  Receipt Date: 20130116
  Transmission Date: 20140127
  Serious: No
  Sender: FDA-Public Use
  Company Number: US-ELI_LILLY_AND_COMPANY-US201207007960

PATIENT
  Sex: Female

DRUGS (3)
  1. FORTEO [Suspect]
     Indication: SENILE OSTEOPOROSIS
     Dosage: 20 UG, QD
     Route: 065
     Dates: start: 201207
  2. FORTEO [Suspect]
     Dosage: 20 UG, QD
     Route: 065
  3. FORTEO [Suspect]
     Dosage: 20 UG, QD
     Route: 065

REACTIONS (17)
  - Fatigue [Unknown]
  - Mobility decreased [Unknown]
  - Pain in extremity [Unknown]
  - Influenza like illness [Unknown]
  - General physical health deterioration [Unknown]
  - Decreased appetite [Unknown]
  - Anxiety [Unknown]
  - Asthenia [Unknown]
  - Arthralgia [Unknown]
  - Insomnia [Unknown]
  - Drug dose omission [Unknown]
  - Nervousness [Unknown]
  - Malaise [Unknown]
  - Visual acuity reduced [Unknown]
  - Frustration [Unknown]
  - Vomiting [Unknown]
  - Musculoskeletal discomfort [Unknown]
